FAERS Safety Report 5247746-3 (Version None)
Quarter: 2007Q1

REPORT INFORMATION
  Report Type: 
  Country: None (occurrence: None)
  Receive Date: 20070220
  Receipt Date: 20070205
  Transmission Date: 20070707
  Serious: Yes (Hospitalization)
  Sender: FDA-Public Use
  Company Number: JPI-P-000515

PATIENT
  Age: 57 Year
  Sex: Female
  Weight: 89.8122 kg

DRUGS (3)
  1. XYREM [Suspect]
     Indication: FIBROMYALGIA
     Dosage: ORAL
     Route: 048
     Dates: start: 20050101, end: 20050301
  2. XYREM [Suspect]
     Indication: NARCOLEPSY
     Dosage: ORAL
     Route: 048
     Dates: start: 20050101, end: 20050301
  3. XYREM [Suspect]
     Indication: SLEEP APNOEA SYNDROME
     Dosage: ORAL
     Route: 048
     Dates: start: 20050101, end: 20050301

REACTIONS (3)
  - ABDOMINAL PAIN [None]
  - DEPRESSION [None]
  - HEPATIC ENZYME INCREASED [None]
